FAERS Safety Report 9003629 (Version 1)
Quarter: 2013Q1

REPORT INFORMATION
  Report Type: Spontaneous
  Country: DE (occurrence: DE)
  Receive Date: 20130108
  Receipt Date: 20130108
  Transmission Date: 20140127
  Serious: Yes (Life-Threatening, Hospitalization)
  Sender: FDA-Public Use
  Company Number: DE-PFIZER INC-2013001115

PATIENT
  Age: 74 Year
  Sex: Female

DRUGS (1)
  1. TYGACIL [Suspect]
     Dosage: 50 MG, UNK
     Dates: start: 20121121, end: 20121130

REACTIONS (1)
  - Acute hepatic failure [Not Recovered/Not Resolved]
